FAERS Safety Report 9422055 (Version 1)
Quarter: 2013Q3

REPORT INFORMATION
  Report Type: Spontaneous
  Country: US (occurrence: US)
  Receive Date: 20130726
  Receipt Date: 20130726
  Transmission Date: 20140515
  Serious: Yes (Other)
  Sender: FDA-Public Use
  Company Number: US-SANOFI-AVENTIS-2013SA074808

PATIENT
  Age: 66 Year
  Sex: Male

DRUGS (4)
  1. LANTUS SOLOSTAR [Suspect]
     Indication: TYPE 2 DIABETES MELLITUS
     Dosage: DOSE:50 UNIT(S)
     Route: 051
  2. SOLOSTAR [Suspect]
     Indication: TYPE 2 DIABETES MELLITUS
  3. LANTUS [Suspect]
     Route: 051
  4. NOVOLOG [Suspect]
     Dosage: DOSE:18 UNIT(S)

REACTIONS (2)
  - Renal disorder [Unknown]
  - Sleep apnoea syndrome [Unknown]
